FAERS Safety Report 13111186 (Version 1)
Quarter: 2017Q1

REPORT INFORMATION
  Report Type: Spontaneous
  Country: US (occurrence: US)
  Receive Date: 20170112
  Receipt Date: 20170112
  Transmission Date: 20170428
  Serious: No
  Sender: FDA-Public Use
  Company Number: US-009507513-1612USA011605

PATIENT
  Age: 53 Year
  Sex: Female

DRUGS (8)
  1. SINGULAIR [Suspect]
     Active Substance: MONTELUKAST SODIUM
     Indication: OCCUPATIONAL ASTHMA
     Dosage: INTERMITENT
     Route: 048
  2. SALMETEROL [Suspect]
     Active Substance: SALMETEROL
     Indication: OCCUPATIONAL ASTHMA
     Dosage: UNK
  3. COUGH, COLD, AND FLU THERAPIES (UNSPECIFIED) [Suspect]
     Active Substance: UNSPECIFIED INGREDIENT
     Indication: OCCUPATIONAL ASTHMA
     Dosage: UNK
  4. FLUTICASONE. [Concomitant]
     Active Substance: FLUTICASONE
     Dosage: INHALED
     Route: 055
  5. CORTICOSTEROIDS (UNSPECIFIED) [Suspect]
     Active Substance: UNSPECIFIED INGREDIENT
     Indication: OCCUPATIONAL ASTHMA
     Dosage: INHALED
     Route: 055
  6. CORTICOSTEROIDS (UNSPECIFIED) [Suspect]
     Active Substance: UNSPECIFIED INGREDIENT
     Indication: OCCUPATIONAL ASTHMA
     Dosage: UNK
     Route: 048
  7. PREDNISONE. [Concomitant]
     Active Substance: PREDNISONE
  8. PROVENTIL [Concomitant]
     Active Substance: ALBUTEROL
     Dosage: UNK, PRN

REACTIONS (1)
  - Drug ineffective [Unknown]
